FAERS Safety Report 6853389-8 (Version None)
Quarter: 2010Q3

REPORT INFORMATION
  Report Type: 
  Country: None (occurrence: None)
  Receive Date: 20100717
  Receipt Date: 20071206
  Transmission Date: 20110219
  Serious: No
  Sender: FDA-Public Use
  Company Number: US-PFIZER INC-2007102799

PATIENT
  Sex: Female
  Weight: 96.8 kg

DRUGS (37)
  1. CHANTIX [Suspect]
     Indication: SMOKING CESSATION THERAPY
     Dates: start: 20071116
  2. POTASSIUM CHLORIDE [Concomitant]
  3. LAMICTAL [Concomitant]
  4. LAMICTAL [Concomitant]
  5. ZESTRIL [Concomitant]
  6. ZESTRIL [Concomitant]
  7. WELLBUTRIN [Concomitant]
  8. WELLBUTRIN [Concomitant]
  9. FELDENE [Concomitant]
  10. FELDENE [Concomitant]
  11. DETROL [Concomitant]
  12. DETROL [Concomitant]
  13. ZANTAC [Concomitant]
  14. ZANTAC [Concomitant]
  15. DEPAKOTE [Concomitant]
  16. DEPAKOTE [Concomitant]
  17. SEROQUEL [Concomitant]
  18. SEROQUEL [Concomitant]
  19. ZOCOR [Concomitant]
  20. ZOCOR [Concomitant]
  21. RISPERDAL [Concomitant]
  22. RISPERDAL [Concomitant]
  23. KLONOPIN [Concomitant]
  24. KLONOPIN [Concomitant]
  25. COMBIVENT [Concomitant]
  26. COMBIVENT [Concomitant]
  27. ALBUTEROL [Concomitant]
  28. ALBUTEROL [Concomitant]
  29. FLOVENT [Concomitant]
  30. FLOVENT [Concomitant]
  31. NITROGLYCERIN [Concomitant]
  32. NITROGLYCERIN [Concomitant]
  33. FLONASE [Concomitant]
  34. FLONASE [Concomitant]
  35. METHADONE HCL [Concomitant]
  36. METHADONE HCL [Concomitant]
  37. FLEXERIL [Concomitant]

REACTIONS (1)
  - FLATULENCE [None]
